FAERS Safety Report 7827796-0 (Version None)
Quarter: 2011Q3

REPORT INFORMATION
  Report Type: 
  Country: None (occurrence: None)
  Receive Date: 20110901
  Receipt Date: 20110125
  Transmission Date: 20111222
  Serious: Yes (Disabling, Other)
  Sender: FDA-Public Use
  Company Number: 247708USA

PATIENT
  Age: 20 Year
  Sex: Female

DRUGS (5)
  1. ZOLPIDEM TARTRATE [Concomitant]
  2. FLUOXETINE HYDROCHLORIDE [Concomitant]
  3. SINEMET [Concomitant]
  4. METOCLOPRAMIDE [Suspect]
     Indication: OESOPHAGEAL HYPOMOTILITY
     Dosage: ORAL
     Route: 048
     Dates: start: 20090201
  5. LANSOPRAZOLE [Concomitant]

REACTIONS (8)
  - MOVEMENT DISORDER [None]
  - DYSKINESIA [None]
  - MALAISE [None]
  - JOINT CONTRACTURE [None]
  - NUCHAL RIGIDITY [None]
  - DYSTONIA [None]
  - EYE MOVEMENT DISORDER [None]
  - MUSCLE SPASMS [None]
